FAERS Safety Report 4401125-7 (Version None)
Quarter: 2004Q3

REPORT INFORMATION
  Report Type: 
  Country: None (occurrence: None)
  Receive Date: 20040907
  Receipt Date: 20031110
  Transmission Date: 20050211
  Serious: No
  Sender: FDA-Public Use
  Company Number: US-BRISTOL-MYERS SQUIBB COMPANY-12431888

PATIENT
  Age: 71 Year
  Sex: Male
  Weight: 83 kg

DRUGS (5)
  1. WARFARIN SODIUM [Suspect]
     Indication: BLOOD VISCOSITY INCREASED
     Dosage: ON VARIOUS DOSES SINCE AUG-02,1 MONTH AGO,DOSE WAS 3MG QD,STOP FOR 2 DAYS, RESTART 2MG QD
     Route: 048
     Dates: start: 20020801
  2. DIOVAN [Concomitant]
  3. NORVASC [Concomitant]
  4. HYDROCHLOROTHIAZIDE [Concomitant]
  5. METOPROLOL [Concomitant]

REACTIONS (1)
  - HAEMATURIA [None]
